FAERS Safety Report 22101651 (Version 1)
Quarter: 2023Q1

REPORT INFORMATION
  Report Type: Spontaneous
  Country: AU (occurrence: AU)
  Receive Date: 20230316
  Receipt Date: 20230316
  Transmission Date: 20230417
  Serious: Yes (Hospitalization)
  Sender: FDA-Public Use
  Company Number: AU-drreddys-LIT/AUS/23/0162355

PATIENT
  Age: 72 Year
  Sex: Female

DRUGS (14)
  1. PREGABALIN [Suspect]
     Active Substance: PREGABALIN
     Indication: Neuralgia
  2. WARFARIN [Suspect]
     Active Substance: WARFARIN
     Indication: Atrial fibrillation
  3. APIXABAN [Suspect]
     Active Substance: APIXABAN
     Indication: Product used for unknown indication
  4. OXYCODONE [Suspect]
     Active Substance: OXYCODONE
     Indication: Calciphylaxis
  5. OXYCODONE [Suspect]
     Active Substance: OXYCODONE
     Indication: Pain in extremity
  6. FENTANYL [Suspect]
     Active Substance: FENTANYL
     Indication: Calciphylaxis
     Route: 060
  7. FENTANYL [Suspect]
     Active Substance: FENTANYL
     Indication: Pain in extremity
     Route: 060
  8. FENTANYL [Suspect]
     Active Substance: FENTANYL
     Route: 060
  9. FENTANYL [Suspect]
     Active Substance: FENTANYL
     Route: 060
  10. TAPENTADOL [Suspect]
     Active Substance: TAPENTADOL
     Indication: Calciphylaxis
  11. TAPENTADOL [Suspect]
     Active Substance: TAPENTADOL
     Indication: Pain in extremity
  12. SODIUM THIOSULFATE [Suspect]
     Active Substance: SODIUM THIOSULFATE
     Indication: Calciphylaxis
  13. SODIUM THIOSULFATE [Suspect]
     Active Substance: SODIUM THIOSULFATE
     Indication: Pain in extremity
  14. METHADONE [Concomitant]
     Active Substance: METHADONE HYDROCHLORIDE
     Indication: Product used for unknown indication

REACTIONS (3)
  - Calciphylaxis [Unknown]
  - Neurotoxicity [Recovering/Resolving]
  - Therapy partial responder [Unknown]
